FAERS Safety Report 6268035-4 (Version None)
Quarter: 2009Q3

REPORT INFORMATION
  Report Type: 
  Country: None (occurrence: None)
  Receive Date: 20090713
  Receipt Date: 20090706
  Transmission Date: 20100115
  Serious: Yes (Hospitalization)
  Sender: FDA-Public Use
  Company Number: WAES  0905CAN00022

PATIENT
  Age: 76 Year
  Sex: Male

DRUGS (7)
  1. JANUVIA [Suspect]
     Indication: TYPE 2 DIABETES MELLITUS
     Dosage: 100 MG DAILY PO
     Route: 048
     Dates: start: 20090311
  2. CITALOPRAM HYDROBROMIDE [Concomitant]
  3. LANSOPRAZOLE [Concomitant]
  4. METFORMIN HCL [Concomitant]
  5. MIRTAZAPINE [Concomitant]
  6. QUETIAPINE FUMARATE [Concomitant]
  7. ROSUVASTATIN CALCIUM [Concomitant]

REACTIONS (5)
  - CONTUSION [None]
  - DEPRESSION [None]
  - FALL [None]
  - GASTRITIS [None]
  - RIB FRACTURE [None]
